FAERS Safety Report 5948521-4 (Version None)
Quarter: 2008Q4

REPORT INFORMATION
  Report Type: 
  Country: None (occurrence: None)
  Receive Date: 20081111
  Receipt Date: 20081031
  Transmission Date: 20090506
  Serious: Yes (Other)
  Sender: FDA-Public Use
  Company Number: B0545604A

PATIENT
  Sex: Female

DRUGS (4)
  1. KIVEXA [Suspect]
     Indication: HIV INFECTION
     Dates: start: 20051102
  2. CRIXIVAN [Suspect]
     Indication: HIV INFECTION
     Dates: start: 20051102, end: 20060410
  3. NORVIR [Suspect]
     Indication: HIV INFECTION
     Route: 048
     Dates: start: 20041102
  4. REYATAZ [Suspect]
     Indication: HIV INFECTION
     Dates: start: 20060410, end: 20060725

REACTIONS (1)
  - HEPATOTOXICITY [None]
